FAERS Safety Report 14769118 (Version 2)
Quarter: 2018Q2

REPORT INFORMATION
  Report Type: Spontaneous
  Country: US (occurrence: US)
  Receive Date: 20180417
  Receipt Date: 20180629
  Transmission Date: 20180711
  Serious: Yes (Other)
  Sender: FDA-Public Use
  Company Number: US-AMGEN-USASP2018048985

PATIENT
  Age: 64 Year
  Sex: Female

DRUGS (1)
  1. PROLIA [Suspect]
     Active Substance: DENOSUMAB
     Indication: PRODUCT USED FOR UNKNOWN INDICATION
     Dosage: UNK
     Route: 065
     Dates: start: 2016, end: 201707

REACTIONS (5)
  - Loss of personal independence in daily activities [Unknown]
  - Femur fracture [Unknown]
  - Hip arthroplasty [Recovering/Resolving]
  - Bone infarction [Recovering/Resolving]
  - Osteonecrosis [Recovering/Resolving]
